FAERS Safety Report 4742616-9 (Version None)
Quarter: 2005Q3

REPORT INFORMATION
  Report Type: 
  Country: None (occurrence: None)
  Receive Date: 20050810
  Receipt Date: 20050802
  Transmission Date: 20060218
  Serious: Yes (Hospitalization, Other)
  Sender: FDA-Public Use
  Company Number: 05-08-1352

PATIENT
  Age: 19 Year
  Sex: Male

DRUGS (3)
  1. LEVOFLOXACIN [Suspect]
     Indication: PERIORBITAL CELLULITIS
     Dosage: 50-600MG QD ORAL
     Route: 048
     Dates: start: 20030101, end: 20030122
  2. OFLOXACIN [Suspect]
     Indication: PERIORBITAL CELLULITIS
     Dosage: 400MG
  3. OXACILLIN INJECTABLE SOLUTION [Concomitant]

REACTIONS (7)
  - BIOPSY PLEURA ABNORMAL [None]
  - HEPATOSPLENOMEGALY [None]
  - HISTIOCYTOSIS HAEMATOPHAGIC [None]
  - LYMPHOPENIA [None]
  - RHABDOMYOLYSIS [None]
  - SWELLING [None]
  - THROMBOCYTOPENIA [None]
